FAERS Safety Report 13738618 (Version 1)
Quarter: 2017Q3

REPORT INFORMATION
  Report Type: Spontaneous
  Country: US (occurrence: US)
  Receive Date: 20170710
  Receipt Date: 20170710
  Transmission Date: 20171127
  Serious: Yes (Death, Other)
  Sender: FDA-Public Use
  Company Number: US-SAOL THERAPEUTICS-2017SAO00288

PATIENT
  Age: 14 Year
  Sex: Male

DRUGS (2)
  1. BACLOFEN. [Suspect]
     Active Substance: BACLOFEN
     Dosage: 1847.8 ?G, \DAY
     Route: 037
     Dates: start: 20100308
  2. UNSPECIFIED ORAL MEDICATIONS [Concomitant]
     Route: 048

REACTIONS (2)
  - Death [Fatal]
  - Accidental overdose [Unknown]

NARRATIVE: CASE EVENT DATE: 20100320
